FAERS Safety Report 10182276 (Version 3)
Quarter: 2014Q2

REPORT INFORMATION
  Report Type: Spontaneous
  Country: GB (occurrence: GB)
  Receive Date: 20140520
  Receipt Date: 20140604
  Transmission Date: 20141212
  Serious: Yes (Hospitalization)
  Sender: FDA-Public Use
  Company Number: GB-DRREDDYS-GER/UKI/14/0040036

PATIENT
  Age: 58 Year
  Sex: Male

DRUGS (16)
  1. GEMCITABINE [Suspect]
     Indication: BLADDER CANCER
     Route: 041
     Dates: start: 20130628, end: 20130830
  2. CISPLATIN [Suspect]
     Indication: BLADDER CANCER
     Route: 041
     Dates: start: 20130628, end: 20130830
  3. AMITRIPTYLINE [Concomitant]
     Indication: PAIN
     Route: 048
     Dates: start: 201303
  4. APREPITANT [Concomitant]
     Indication: PROPHYLAXIS OF NAUSEA AND VOMITING
     Route: 048
     Dates: start: 20130628
  5. CIPROFLOXACIN [Concomitant]
     Indication: ANTIBIOTIC THERAPY
     Route: 048
     Dates: start: 20130705
  6. DEXAMETHASONE [Concomitant]
     Indication: PROPHYLAXIS OF NAUSEA AND VOMITING
     Route: 048
     Dates: start: 20130728
  7. DOMPERIDONE [Concomitant]
     Indication: PROPHYLAXIS OF NAUSEA AND VOMITING
     Route: 048
     Dates: start: 20130628
  8. ENOXAPARIN [Concomitant]
     Indication: PRODUCT USED FOR UNKNOWN INDICATION
  9. GABAPENTIN [Concomitant]
     Indication: PAIN
     Route: 048
     Dates: start: 20130606, end: 20130726
  10. MOVICOL [Concomitant]
     Indication: CONSTIPATION PROPHYLAXIS
     Route: 048
     Dates: start: 201303
  11. MST CONTINUS [Concomitant]
     Indication: PAIN
     Route: 048
     Dates: start: 201303
  12. ONDANSETRON [Concomitant]
     Indication: PROPHYLAXIS OF NAUSEA AND VOMITING
     Route: 048
     Dates: start: 20130728
  13. ORAMORPH [Concomitant]
     Indication: PAIN
     Route: 048
     Dates: start: 201306
  14. PARACETAMOL [Concomitant]
     Indication: PAIN
     Route: 048
     Dates: start: 201303
  15. SENNA [Concomitant]
     Indication: CONSTIPATION PROPHYLAXIS
     Route: 048
     Dates: start: 201303
  16. TAMSULOSIN [Concomitant]
     Indication: URINARY RETENTION
     Route: 048
     Dates: start: 201303

REACTIONS (3)
  - Anaemia [Recovered/Resolved]
  - Dizziness [Recovered/Resolved]
  - Malaise [Recovered/Resolved]
